FAERS Safety Report 5383600-4 (Version None)
Quarter: 2007Q3

REPORT INFORMATION
  Report Type: 
  Country: None (occurrence: None)
  Receive Date: 20070706
  Receipt Date: 20070621
  Transmission Date: 20080115
  Serious: Yes (Hospitalization)
  Sender: FDA-Public Use
  Company Number: WAES 0706ISR00009

PATIENT
  Sex: Female

DRUGS (10)
  1. ZETIA [Suspect]
     Dosage: PO
     Route: 048
  2. CILAZAPRIL [Suspect]
  3. DILTIAZEM HCL [Suspect]
  4. METFORMIN HCL [Suspect]
  5. DEXAMETHASONE [Suspect]
     Dosage: PO
     Route: 048
  6. HYDROCHLOROTHIAZIDE [Suspect]
     Dosage: PO
     Route: 048
  7. NIFEDIPINE [Suspect]
  8. FAMOTIDINE [Concomitant]
  9. GLYBURIDE [Concomitant]
  10. TEMOZOLOMIDE [Concomitant]

REACTIONS (3)
  - CARDIAC FAILURE CONGESTIVE [None]
  - OEDEMA PERIPHERAL [None]
  - UPPER RESPIRATORY TRACT INFECTION [None]
